FAERS Safety Report 6252294-8 (Version None)
Quarter: 2009Q3

REPORT INFORMATION
  Report Type: 
  Country: None (occurrence: None)
  Receive Date: 20090701
  Receipt Date: 20070606
  Transmission Date: 20100115
  Serious: Yes (Other)
  Sender: FDA-Public Use
  Company Number: US-ASTRAZENECA-2006UW27647

PATIENT
  Age: 53 Year
  Sex: Female
  Weight: 58.1 kg

DRUGS (23)
  1. SEROQUEL [Suspect]
     Indication: MIGRAINE
     Dosage: 25-200 MG
     Route: 048
     Dates: start: 20020105, end: 20051003
  2. SEROQUEL [Suspect]
     Indication: SLEEP DISORDER
     Dosage: 25-200 MG
     Route: 048
     Dates: start: 20020105, end: 20051003
  3. SEROQUEL [Suspect]
     Indication: POST-TRAUMATIC STRESS DISORDER
     Dosage: 25-200 MG
     Route: 048
     Dates: start: 20020105, end: 20051003
  4. SEROQUEL [Suspect]
     Dosage: 25 MG TO 200 MG
     Route: 048
     Dates: start: 20030105, end: 20050601
  5. SEROQUEL [Suspect]
     Dosage: 25 MG TO 200 MG
     Route: 048
     Dates: start: 20030105, end: 20050601
  6. SEROQUEL [Suspect]
     Dosage: 25 MG TO 200 MG
     Route: 048
     Dates: start: 20030105, end: 20050601
  7. LIPITOR [Concomitant]
     Route: 048
     Dates: start: 20050101
  8. XANAX [Concomitant]
  9. VISTARIL [Concomitant]
  10. AMBIEN [Concomitant]
  11. METHADONE [Concomitant]
     Route: 048
     Dates: start: 20030105
  12. PROZAC [Concomitant]
     Route: 048
     Dates: start: 20030105
  13. TOPAMAX [Concomitant]
     Route: 048
     Dates: start: 20030105
  14. VIOXX [Concomitant]
     Route: 048
     Dates: start: 20030113
  15. ZOFRAN [Concomitant]
     Indication: NAUSEA
     Dosage: 4 MG AS REQUIRED
     Route: 048
     Dates: start: 20030109
  16. ZANAFLEX [Concomitant]
     Route: 048
     Dates: start: 20030113
  17. NAPROSYN [Concomitant]
     Dates: start: 20000720
  18. NEURONTIN [Concomitant]
     Dosage: 300-900 MG
     Dates: start: 20001228
  19. BACLOFEN [Concomitant]
     Indication: MUSCLE RELAXANT THERAPY
     Dosage: 10-30 MG
     Route: 048
     Dates: start: 20050125
  20. PAXIL [Concomitant]
     Dosage: 20-40 MG
     Dates: start: 20001228
  21. SENOKOT [Concomitant]
     Dates: start: 20030107
  22. NIASPAN [Concomitant]
     Dates: start: 20070220
  23. GABITRIL [Concomitant]
     Dates: start: 20070220

REACTIONS (10)
  - BLOOD CHOLESTEROL INCREASED [None]
  - CATARACT [None]
  - DIABETES MELLITUS [None]
  - DIABETIC NEUROPATHY [None]
  - DIABETIC RETINOPATHY [None]
  - DRUG HYPERSENSITIVITY [None]
  - FOOT OPERATION [None]
  - HYPERTENSION [None]
  - NEURECTOMY [None]
  - PERIPHERAL NERVE DECOMPRESSION [None]
